FAERS Safety Report 13285380 (Version 3)
Quarter: 2017Q3

REPORT INFORMATION
  Report Type: Spontaneous
  Country: NO (occurrence: NO)
  Receive Date: 20170301
  Receipt Date: 20170712
  Transmission Date: 20171127
  Serious: Yes (Life-Threatening, Hospitalization, Other)
  Sender: FDA-Public Use
  Company Number: NO-PFIZER INC-2016569232

PATIENT
  Age: 51 Year
  Sex: Male

DRUGS (8)
  1. PARACET [Concomitant]
     Active Substance: ACETAMINOPHEN
     Indication: PAIN
     Dosage: 1 G, 3X/DAY
  2. LAXOBERAL [Concomitant]
     Active Substance: SODIUM PICOSULFATE
     Dosage: 10 GTT, DAILY IN EVENING
     Dates: start: 201612
  3. ZOFRAN [Concomitant]
     Active Substance: ONDANSETRON HYDROCHLORIDE
     Indication: PAIN
     Dosage: 4 MG, AS NEEDED
  4. COSYLAN [Concomitant]
     Dosage: AS NEEDED
  5. TRAMADOL ACTAVIS [Concomitant]
     Active Substance: TRAMADOL
     Dosage: 50 MG, AS NEEDED
  6. OXYNORM [Concomitant]
     Active Substance: OXYCODONE HYDROCHLORIDE
     Indication: PAIN
     Dosage: 5 MG, AS NEEDED
  7. XALKORI [Suspect]
     Active Substance: CRIZOTINIB
     Indication: NON-SMALL CELL LUNG CANCER
     Dosage: 250 MG, 2X/DAY
     Route: 048
     Dates: start: 20161107, end: 20170112
  8. DUPHALAC [Concomitant]
     Active Substance: LACTULOSE
     Dosage: 15 ML, AS NEEDED

REACTIONS (4)
  - Hepatitis [Recovered/Resolved]
  - Pleural effusion [Unknown]
  - Transaminases increased [Unknown]
  - Pneumonia bacterial [Unknown]

NARRATIVE: CASE EVENT DATE: 201702
